FAERS Safety Report 9492773 (Version 7)
Quarter: 2013Q4

REPORT INFORMATION
  Report Type: Spontaneous
  Country: US (occurrence: US)
  Receive Date: 20130830
  Receipt Date: 20131218
  Transmission Date: 20140711
  Serious: Yes (Death, Other)
  Sender: FDA-Public Use
  Company Number: US-PFIZER INC-2013247430

PATIENT
  Age: 68 Year
  Sex: Male
  Weight: 93.4 kg

DRUGS (26)
  1. SUTENT [Suspect]
     Indication: RENAL CANCER
     Dosage: 50 MG, DAILY CYCLIC (28 DAYS ON AND 14 DAYS OFF)
     Route: 048
     Dates: start: 20130823, end: 20130919
  2. SUTENT [Suspect]
     Dosage: 50 MG CYCLIC (ONCE DAILY, 2 WEEKS ON AND 1 WEEK OFF)
     Route: 048
     Dates: start: 20131011, end: 20131022
  3. SUTENT [Suspect]
     Dosage: UNK
     Route: 048
     Dates: start: 20131101, end: 20131111
  4. GEMFIBROZIL [Concomitant]
     Indication: BLOOD CHOLESTEROL INCREASED
     Dosage: 600 MG, UNK
  5. ATORVASTATIN [Concomitant]
     Indication: BLOOD CHOLESTEROL INCREASED
     Dosage: UNK
  6. METOPROLOL [Concomitant]
     Indication: HYPERTENSION
     Dosage: 100 MG, 1X/DAY
  7. NIFEDIPINE [Concomitant]
     Indication: HYPERTENSION
     Dosage: 60 MG, 1X/DAY
  8. HYDRALAZINE HYDROCHLORIDE [Concomitant]
     Indication: HYPERTENSION
     Dosage: 50 MG, UNK
  9. AMITRIPTYLINE [Concomitant]
     Dosage: UNK
  10. ATIVAN [Concomitant]
     Dosage: UNK
  11. GABAPENTIN [Concomitant]
     Dosage: UNK
  12. GLIPIZIDE [Concomitant]
     Dosage: UNK
  13. HYDROCODONE W/ACETAMINOPHEN [Concomitant]
     Dosage: UNK, 10/325
  14. HUMULIN N [Concomitant]
     Dosage: UNK
  15. IRON [Concomitant]
     Dosage: UNK
  16. LASIX [Concomitant]
     Dosage: UNK
  17. LEVETIRACETAM [Concomitant]
     Dosage: 500 MG, UNK
  18. METHOCARBAMOL [Concomitant]
     Dosage: UNK
  19. NOVOLOG [Concomitant]
     Dosage: UNK
  20. PRILOSEC [Concomitant]
     Dosage: UNK
  21. VITAMIN C [Concomitant]
     Dosage: UNK
  22. ZANTAC [Concomitant]
     Dosage: UNK
  23. TYLENOL 3 [Concomitant]
     Dosage: UNK
  24. ZOLPIDEM [Concomitant]
     Dosage: UNK
  25. ZYRTEC [Concomitant]
     Dosage: UNK
  26. INSULIN [Concomitant]
     Dosage: UNK

REACTIONS (17)
  - Death [Fatal]
  - Urinary retention [Recovered/Resolved]
  - Disease progression [Not Recovered/Not Resolved]
  - Renal cancer [Not Recovered/Not Resolved]
  - Somnolence [Not Recovered/Not Resolved]
  - Blood pressure increased [Not Recovered/Not Resolved]
  - Oral pain [Unknown]
  - Asthenia [Not Recovered/Not Resolved]
  - Decreased appetite [Recovering/Resolving]
  - Sinusitis [Unknown]
  - Pyrexia [Unknown]
  - Nasal congestion [Unknown]
  - Confusional state [Unknown]
  - Hallucination [Unknown]
  - Urine analysis abnormal [Unknown]
  - Blood glucose decreased [Unknown]
  - Fatigue [Unknown]
